FAERS Safety Report 5724631-1 (Version None)
Quarter: 2008Q2

REPORT INFORMATION
  Report Type: 
  Country: None (occurrence: None)
  Receive Date: 20080501
  Receipt Date: 20080423
  Transmission Date: 20081010
  Serious: Yes (Other)
  Sender: FDA-Public Use
  Company Number: BR-ASTRAZENECA-2008UW08375

PATIENT
  Age: 60 Year
  Sex: Female

DRUGS (4)
  1. ATENOL [Suspect]
     Indication: HYPERTENSION
     Route: 048
  2. GALVOS [Concomitant]
     Indication: DIABETES MELLITUS
     Route: 048
  3. SIMVASTATIN [Concomitant]
     Indication: HYPERCHOLESTEROLAEMIA
     Route: 048
  4. UNKNOWN [Concomitant]
     Indication: DEPRESSION
     Route: 048

REACTIONS (1)
  - BLOOD PRESSURE INCREASED [None]
